FAERS Safety Report 24818050 (Version 1)
Quarter: 2025Q1

REPORT INFORMATION
  Report Type: Spontaneous
  Country: US (occurrence: US)
  Receive Date: 20250108
  Receipt Date: 20250108
  Transmission Date: 20250409
  Serious: Yes (Other)
  Sender: TASMAN PHARMA
  Company Number: US-TASMAN PHARMA, INC.-2024TSM00261

PATIENT
  Age: 68 Year
  Sex: Female

DRUGS (1)
  1. CLOZAPINE [Suspect]
     Active Substance: CLOZAPINE

REACTIONS (1)
  - Intestinal pseudo-obstruction [Recovering/Resolving]
